FAERS Safety Report 6193665-8 (Version None)
Quarter: 2009Q2

REPORT INFORMATION
  Report Type: 
  Country: None (occurrence: None)
  Receive Date: 20090518
  Receipt Date: 20090506
  Transmission Date: 20091009
  Serious: Yes (Hospitalization, Disabling)
  Sender: FDA-Public Use
  Company Number: FR-PFIZER INC-2009163185

PATIENT
  Age: 21 Year

DRUGS (5)
  1. SOMAVERT [Suspect]
     Indication: ACROMEGALY
     Dosage: 10 MG, UNK
     Route: 058
     Dates: start: 20081128, end: 20090123
  2. TETRALYSAL [Concomitant]
     Dosage: 150 MG, 2X/DAY
     Route: 048
     Dates: start: 20081015, end: 20081212
  3. LEVOTHYROX [Concomitant]
     Indication: THYROID DISORDER
     Dosage: 75 UG, 1X/DAY
     Route: 048
  4. TRAMADOL HCL [Concomitant]
     Indication: HEADACHE
     Dosage: 100MG, 2X/DAY
     Route: 048
     Dates: end: 20081212
  5. SANDOSTATIN [Concomitant]
     Dosage: UNK
     Route: 058
     Dates: start: 20080718, end: 20090122

REACTIONS (4)
  - ARTHRALGIA [None]
  - INJECTION SITE ERYTHEMA [None]
  - MYALGIA [None]
  - PYREXIA [None]
